FAERS Safety Report 15898240 (Version 1)
Quarter: 2019Q1

REPORT INFORMATION
  Report Type: Spontaneous
  Country: MT (occurrence: MT)
  Receive Date: 20190201
  Receipt Date: 20190201
  Transmission Date: 20190417
  Serious: Yes (Other)
  Sender: FDA-Public Use
  Company Number: MT-TEVA-2019-MT-1006626

PATIENT
  Sex: Female

DRUGS (1)
  1. CYCLOGEST 400 MG [Suspect]
     Active Substance: PROGESTERONE
     Route: 065

REACTIONS (2)
  - Haemorrhage in pregnancy [Unknown]
  - Exposure during pregnancy [None]
